FAERS Safety Report 21906558 (Version 1)
Quarter: 2023Q1

REPORT INFORMATION
  Report Type: Spontaneous
  Country: RU (occurrence: RU)
  Receive Date: 20230125
  Receipt Date: 20230125
  Transmission Date: 20230418
  Serious: Yes (Hospitalization, Other)
  Sender: FDA-Public Use
  Company Number: RU-VALIDUS PHARMACEUTICALS LLC-RU-VDP-2023-015913

PATIENT

DRUGS (4)
  1. TRENTAL [Suspect]
     Active Substance: PENTOXIFYLLINE
     Indication: Trigeminal neuralgia
     Dosage: UNK
     Route: 048
     Dates: start: 20230105, end: 20230105
  2. CARBAMAZEPINE [Suspect]
     Active Substance: CARBAMAZEPINE
     Indication: Trigeminal neuralgia
     Dosage: UNK
     Route: 048
     Dates: start: 20230105, end: 20230105
  3. NIMESULIDE [Suspect]
     Active Substance: NIMESULIDE
     Indication: Trigeminal neuralgia
     Dosage: UNK
     Route: 048
     Dates: start: 20230105, end: 20230105
  4. TOLPERISONE [Suspect]
     Active Substance: TOLPERISONE
     Indication: Trigeminal neuralgia
     Dosage: UNK
     Route: 048
     Dates: start: 20230105, end: 20230105

REACTIONS (1)
  - Angioedema [Recovering/Resolving]

NARRATIVE: CASE EVENT DATE: 20230105
